FAERS Safety Report 11050901 (Version 7)
Quarter: 2015Q3

REPORT INFORMATION
  Report Type: Spontaneous
  Country: US (occurrence: None)
  Receive Date: 20150417
  Receipt Date: 20150826
  Transmission Date: 20151125
  Serious: Yes (Hospitalization, Other)
  Sender: FDA-Public Use
  Company Number: ADR-2015-00723

PATIENT
  Age: 23 Year
  Sex: Male

DRUGS (1)
  1. LIORESAL [Suspect]
     Active Substance: BACLOFEN
     Indication: MUSCLE SPASTICITY

REACTIONS (8)
  - Procedural complication [None]
  - Device connection issue [None]
  - Medical device site discharge [None]
  - Implant site dehiscence [None]
  - Medical device site haematoma [None]
  - Medical device site bruise [None]
  - Implant site extravasation [None]
  - Wound infection staphylococcal [None]
